FAERS Safety Report 5109118-1 (Version None)
Quarter: 2006Q3

REPORT INFORMATION
  Report Type: 
  Country: None (occurrence: None)
  Receive Date: 20060918
  Receipt Date: 20060829
  Transmission Date: 20061208
  Serious: Yes (Death, Other)
  Sender: FDA-Public Use
  Company Number: US200608006485

PATIENT
  Age: 64 Year
  Sex: Male

DRUGS (1)
  1. HUMULIN L [Suspect]
     Indication: DIABETES MELLITUS

REACTIONS (2)
  - CARDIAC FAILURE CONGESTIVE [None]
  - MYOCARDIAL INFARCTION [None]
